FAERS Safety Report 5130088-4 (Version None)
Quarter: 2006Q4

REPORT INFORMATION
  Report Type: 
  Country: None (occurrence: None)
  Receive Date: 20061011
  Receipt Date: 20061003
  Transmission Date: 20070319
  Serious: Yes (Hospitalization)
  Sender: FDA-Public Use
  Company Number: HQWYE846210OCT06

PATIENT
  Age: 5 Year
  Sex: Female

DRUGS (1)
  1. ADVIL [Suspect]
     Indication: GASTROENTERITIS
     Dosage: ORAL
     Route: 048
     Dates: start: 20060823, end: 20060824

REACTIONS (2)
  - HAEMODIALYSIS [None]
  - RENAL FAILURE ACUTE [None]
